FAERS Safety Report 18378781 (Version 2)
Quarter: 2021Q1

REPORT INFORMATION
  Report Type: Spontaneous
  Country: AU (occurrence: AU)
  Receive Date: 20201013
  Receipt Date: 20210202
  Transmission Date: 20210419
  Serious: Yes (Hospitalization)
  Sender: FDA-Public Use
  Company Number: AU-MYLANLABS-2020M1085732

PATIENT
  Age: 53 Year
  Sex: Male

DRUGS (1)
  1. SULPHAMETHOXAZOLE/TRIMETHOPRIM [Suspect]
     Active Substance: SULFAMETHOXAZOLE\TRIMETHOPRIM
     Indication: PROPHYLAXIS
     Dosage: SULFAMETHOXAZOLE 800MG / TRIMETHOPRIM 160MG, THREE TIMES PER WEEK
     Route: 065

REACTIONS (3)
  - Oedema [Recovering/Resolving]
  - Nephrogenic diabetes insipidus [Recovered/Resolved]
  - Tubulointerstitial nephritis [Recovered/Resolved]
